FAERS Safety Report 16449208 (Version 1)
Quarter: 2019Q2

REPORT INFORMATION
  Report Type: Other
  Country: US (occurrence: US)
  Receive Date: 20190619
  Receipt Date: 20190619
  Transmission Date: 20190711
  Serious: Yes (Hospitalization)
  Sender: FDA-Public Use
  Company Number: US-APPCO PHARMA LLC-2069355

PATIENT
  Age: 55 Year
  Sex: Male

DRUGS (5)
  1. DARUNAVIR [Concomitant]
     Active Substance: DARUNAVIR
     Route: 065
  2. RITONAVIR. [Interacting]
     Active Substance: RITONAVIR
     Route: 065
  3. RALTEGRAVIR. [Concomitant]
     Active Substance: RALTEGRAVIR
     Route: 065
  4. BUDESONIDE. [Suspect]
     Active Substance: BUDESONIDE
     Indication: CHRONIC OBSTRUCTIVE PULMONARY DISEASE
     Route: 045
  5. MARAVIROC [Concomitant]
     Active Substance: MARAVIROC
     Route: 065

REACTIONS (6)
  - Product use in unapproved indication [Unknown]
  - Cushing^s syndrome [Recovering/Resolving]
  - Cellulitis [Unknown]
  - Oral candidiasis [Unknown]
  - Sinusitis [Unknown]
  - Drug interaction [Recovering/Resolving]
